FAERS Safety Report 6232261-0 (Version None)
Quarter: 2009Q2

REPORT INFORMATION
  Report Type: 
  Country: None (occurrence: None)
  Receive Date: 20090617
  Receipt Date: 20090609
  Transmission Date: 20091009
  Serious: Yes (Hospitalization)
  Sender: FDA-Public Use
  Company Number: IT-PFIZER INC-2009225030

PATIENT
  Age: 86 Year

DRUGS (5)
  1. SUTENT [Suspect]
     Indication: RENAL CANCER
     Dosage: 25 MG, 1X/DAY
     Route: 048
     Dates: start: 20081103, end: 20090313
  2. LASIX [Concomitant]
     Dosage: 25 MG, UNK
     Route: 048
  3. PANTECTA [Concomitant]
     Dosage: 20 MG, UNK
     Route: 048
  4. ANTEPSIN [Concomitant]
     Dosage: 2 G, UNK
     Route: 048
  5. ASPIRIN [Concomitant]
     Dosage: 100 MG, UNK
     Route: 048

REACTIONS (1)
  - ACUTE MYOCARDIAL INFARCTION [None]
